FAERS Safety Report 6608257-3 (Version None)
Quarter: 2010Q1

REPORT INFORMATION
  Report Type: 
  Country: None (occurrence: None)
  Receive Date: 20100223
  Receipt Date: 20100217
  Transmission Date: 20100710
  Serious: Yes (Death, Hospitalization)
  Sender: FDA-Public Use
  Company Number: 2010US000326

PATIENT
  Age: 58 Year
  Sex: Male
  Weight: 91 kg

DRUGS (16)
  1. PROGRAF [Suspect]
     Indication: LIVER TRANSPLANT
     Dosage: 2 MG, BID, ORAL
     Route: 048
     Dates: start: 20041101, end: 20100131
  2. SIROLIMUS (RAPAMUNE) [Concomitant]
  3. RAPAMUNE [Concomitant]
  4. ALPRAZOLAM [Concomitant]
  5. CALCIUM +D (CALCIUM, ERGOCALCIFEROL) TABLET [Concomitant]
  6. SOMA [Concomitant]
  7. LEXAPRO [Concomitant]
  8. METOPROLOL TARTRATE 9METOPROLOL TARTRATE) TABLET [Concomitant]
  9. ZOFRAN (ONDANSETRON) TABLET [Concomitant]
  10. OXYCODONE (OXYCODONE) TABLET [Concomitant]
  11. OXYCONTIN (OXYCODONE HYDROCHLORIDE) TABLET [Concomitant]
  12. PROTONIX [Concomitant]
  13. REGLAN [Concomitant]
  14. SLOW-MAG (MAGNESIUM) TABLET [Concomitant]
  15. THERAGRAN (VITAMINS NOS) [Concomitant]
  16. AMBIEN [Concomitant]

REACTIONS (17)
  - ABDOMINAL PAIN UPPER [None]
  - ATELECTASIS [None]
  - BILE DUCT CANCER [None]
  - BILE DUCT CANCER RECURRENT [None]
  - COLLAPSE OF LUNG [None]
  - COUGH [None]
  - DEPRESSED LEVEL OF CONSCIOUSNESS [None]
  - HYPOKALAEMIA [None]
  - LUNG CONSOLIDATION [None]
  - LUNG NEOPLASM [None]
  - LYMPHADENOPATHY MEDIASTINAL [None]
  - NAUSEA [None]
  - NEOPLASM PROGRESSION [None]
  - PLEURAL EFFUSION [None]
  - PLEURISY [None]
  - RENAL FAILURE ACUTE [None]
  - RESPIRATORY FAILURE [None]
